FAERS Safety Report 12764033 (Version 2)
Quarter: 2016Q3

REPORT INFORMATION
  Report Type: Spontaneous
  Country: GB (occurrence: GB)
  Receive Date: 20160920
  Receipt Date: 20160927
  Transmission Date: 20161109
  Serious: Yes (Other)
  Sender: FDA-Public Use
  Company Number: GB-009507513-1609GBR008975

PATIENT
  Age: 56 Year
  Sex: Female
  Weight: 73.02 kg

DRUGS (5)
  1. MOMETASONE FUROATE. [Suspect]
     Active Substance: MOMETASONE FUROATE
     Indication: NASAL OBSTRUCTION
     Dosage: 50 MICROGRAMS/ACTUATION. 2 SPRAYS IN EACH NOSTRIL.
     Route: 045
     Dates: start: 20160828, end: 20160905
  2. LORATADINE. [Concomitant]
     Active Substance: LORATADINE
     Dosage: 10 MG, UNK
  3. LEVOTHYROXINE SODIUM. [Concomitant]
     Active Substance: LEVOTHYROXINE SODIUM
     Dosage: 100 MICROGRAM, UNK
  4. NASOBEC [Concomitant]
     Dosage: 50 MICROGRAM, UNK
  5. PERINDOPRIL [Concomitant]
     Active Substance: PERINDOPRIL
     Dosage: 8 MG, UNK

REACTIONS (5)
  - Sinus headache [Recovering/Resolving]
  - Parosmia [Recovered/Resolved]
  - Dysgeusia [Recovered/Resolved]
  - Neck pain [Recovering/Resolving]
  - Nausea [Recovering/Resolving]

NARRATIVE: CASE EVENT DATE: 20160831
